FAERS Safety Report 7002209-X (Version None)
Quarter: 2010Q3

REPORT INFORMATION
  Report Type: 
  Country: None (occurrence: None)
  Receive Date: 20100920
  Receipt Date: 20070629
  Transmission Date: 20110219
  Serious: Yes (Other)
  Sender: FDA-Public Use
  Company Number: US-ASTRAZENECA-2006UW20854

PATIENT
  Age: 13120 Day
  Sex: Female
  Weight: 116.6 kg

DRUGS (10)
  1. SEROQUEL [Suspect]
     Indication: SCHIZOPHRENIA
     Dosage: 200MG-800MG
     Route: 048
     Dates: start: 20021210
  2. SEROQUEL [Suspect]
     Route: 048
     Dates: start: 20040101
  3. GLUCOPHAGE [Concomitant]
     Dosage: 500MG-1000MG
     Route: 048
     Dates: start: 20041021
  4. LIPITOR [Concomitant]
     Dosage: 10MG-20MG
     Route: 048
     Dates: start: 20041002
  5. DEPAKOTE [Concomitant]
     Dosage: 250MG-1750MG
     Route: 048
     Dates: start: 20040825
  6. TOPAMAX [Concomitant]
     Dosage: 25MG-100MG
     Dates: start: 20030728
  7. LORAZEPAM [Concomitant]
     Dates: start: 20030728
  8. SONATA [Concomitant]
     Dates: start: 20030728
  9. LEVOXYL [Concomitant]
     Dosage: 0.15MG-0.3MG
     Dates: start: 20000728
  10. AMBIEN [Concomitant]
     Dates: start: 20030728

REACTIONS (2)
  - DIABETES MELLITUS [None]
  - DIABETES MELLITUS INADEQUATE CONTROL [None]
